FAERS Safety Report 8313316 (Version 2)
Quarter: 2013Q4

REPORT INFORMATION
  Report Type: Spontaneous
  Country: US (occurrence: US)
  Receive Date: 20111228
  Receipt Date: 20131016
  Transmission Date: 20140711
  Serious: Yes (Death)
  Sender: FDA-Public Use
  Company Number: US-PFIZER INC-2011310116

PATIENT
  Age: 72 Year
  Sex: Female

DRUGS (2)
  1. ATENOLOL [Suspect]
     Dosage: UNK
     Route: 048
  2. AMLODIPINE BESILATE [Suspect]
     Dosage: UNK
     Route: 048

REACTIONS (1)
  - Adverse reaction [Fatal]
